FAERS Safety Report 4911477-7 (Version None)
Quarter: 2006Q1

REPORT INFORMATION
  Report Type: 
  Country: None (occurrence: None)
  Receive Date: 20060113
  Receipt Date: 20051007
  Transmission Date: 20060701
  Serious: No
  Sender: FDA-Public Use
  Company Number: 2005SP003409

PATIENT
  Age: 87 Year
  Sex: Female

DRUGS (4)
  1. LUNESTA [Suspect]
     Indication: MIDDLE INSOMNIA
     Dosage: 2 MG; HS; ORAL
     Route: 048
     Dates: start: 20051002, end: 20051004
  2. WARFARIN SODIUM [Concomitant]
  3. ATORVASTATIN CALCIUM [Concomitant]
  4. LASIX [Concomitant]

REACTIONS (3)
  - DRUG INEFFECTIVE [None]
  - DYSGEUSIA [None]
  - INSOMNIA [None]
